FAERS Safety Report 7978483-X (Version None)
Quarter: 2011Q4

REPORT INFORMATION
  Report Type: 
  Country: None (occurrence: None)
  Receive Date: 20111214
  Receipt Date: 20111206
  Transmission Date: 20120403
  Serious: Yes (Hospitalization, Other)
  Sender: FDA-Public Use
  Company Number: CA-JNJFOC-20111202843

PATIENT
  Age: 68 Year
  Sex: Female

DRUGS (14)
  1. CLOPIDOGREL [Concomitant]
     Route: 065
  2. ISOSORBIDE MONONITRATE [Concomitant]
     Route: 065
  3. METFORMIN HCL [Concomitant]
     Route: 065
  4. CITALOPRAM [Concomitant]
     Route: 065
  5. METOPROLOL [Concomitant]
     Route: 065
  6. AMLODIPINE [Concomitant]
     Route: 065
  7. GLYBURIDE [Concomitant]
     Route: 065
  8. ABCIXIMAB [Suspect]
     Route: 042
     Dates: end: 20060101
  9. ABCIXIMAB [Suspect]
     Indication: ANGIOPLASTY
     Route: 042
  10. NITROGLYCERIN SPRAY [Concomitant]
     Route: 065
  11. ASPIRIN [Concomitant]
     Route: 065
  12. VALSARTAN [Concomitant]
     Route: 065
  13. HEPARIN [Suspect]
     Indication: ANGIOPLASTY
     Route: 042
  14. ATORVASTATIN [Concomitant]
     Route: 065

REACTIONS (1)
  - AUTOIMMUNE THROMBOCYTOPENIA [None]
